FAERS Safety Report 8592632-4 (Version None)
Quarter: 2012Q3

REPORT INFORMATION
  Report Type: 
  Country: None (occurrence: None)
  Receive Date: 20120814
  Receipt Date: 20120808
  Transmission Date: 20120928
  Serious: Yes (Hospitalization)
  Sender: FDA-Public Use
  Company Number: FR-PFIZER INC-2012193545

PATIENT
  Age: 42 Year
  Sex: Male

DRUGS (5)
  1. METHOTREXATE SODIUM [Interacting]
     Dosage: 5643 MG, UNK
     Route: 042
     Dates: start: 20120413, end: 20120413
  2. KIDROLASE [Concomitant]
     Dosage: 18810 IU, UNK
     Route: 042
     Dates: start: 20120415, end: 20120415
  3. ONCOVIN [Concomitant]
     Dosage: 2 MG, UNK
     Route: 042
     Dates: start: 20120413, end: 20120413
  4. PURINETHOL [Concomitant]
     Dosage: 100 MG, DAILY
     Route: 048
     Dates: start: 20120413, end: 20120419
  5. PANTOPRAZOLE [Suspect]
     Dosage: 20 MG, UNK
     Route: 048
     Dates: start: 20120301

REACTIONS (3)
  - DRUG LEVEL INCREASED [None]
  - RENAL FAILURE ACUTE [None]
  - DRUG INTERACTION [None]
